FAERS Safety Report 9710121 (Version 8)
Quarter: 2014Q1

REPORT INFORMATION
  Report Type: Report from Study
  Country: DE (occurrence: DE)
  Receive Date: 20131126
  Receipt Date: 20140305
  Transmission Date: 20141002
  Serious: Yes (Hospitalization, Disabling, Other)
  Sender: FDA-Public Use
  Company Number: PHHY2013DE133902

PATIENT
  Sex: Female
  Weight: 67.8 kg

DRUGS (4)
  1. AFINITOR [Suspect]
     Indication: BREAST CANCER METASTATIC
     Dosage: 10 MG, QD
     Route: 048
     Dates: start: 20131008, end: 20131030
  2. AFINITOR [Suspect]
     Dosage: 10 MG, QD
     Route: 048
     Dates: start: 20131102, end: 20131107
  3. EXEMESTANE [Suspect]
     Indication: BREAST CANCER METASTATIC
     Dosage: 25 MG, DAILY
     Route: 048
     Dates: start: 20131008, end: 20131110
  4. BISPHOSPHONATES [Concomitant]
     Indication: BONE DISORDER

REACTIONS (8)
  - Retching [Recovering/Resolving]
  - Nausea [Not Recovered/Not Resolved]
  - Abdominal pain upper [Recovering/Resolving]
  - Gastritis [Unknown]
  - Vomiting [Not Recovered/Not Resolved]
  - Fatigue [Unknown]
  - White blood cells urine positive [Unknown]
  - Stomatitis [Unknown]
